FAERS Safety Report 7569828-3 (Version None)
Quarter: 2011Q2

REPORT INFORMATION
  Report Type: 
  Country: None (occurrence: None)
  Receive Date: 20110624
  Receipt Date: 20110620
  Transmission Date: 20111010
  Serious: Yes (Death, Life-Threatening, Hospitalization)
  Sender: FDA-Public Use
  Company Number: FR-AMGEN-FRASP2011025615

PATIENT
  Age: 20 Year
  Sex: Male

DRUGS (5)
  1. DOXORUBICIN HCL [Suspect]
     Dosage: UNK
     Route: 042
     Dates: start: 20100616, end: 20101103
  2. DACARBAZINE [Suspect]
     Dosage: UNK
     Route: 042
     Dates: start: 20100616, end: 20101103
  3. BLEOMYCIN SULFATE [Suspect]
     Dosage: UNK
     Route: 042
     Dates: start: 20100616, end: 20101103
  4. VINBLASTINE SULFATE [Suspect]
     Dosage: UNK
     Route: 042
     Dates: start: 20100616, end: 20101103
  5. NEULASTA [Suspect]
     Indication: CHEMOTHERAPY
     Dosage: 6 MG, UNK
     Route: 058
     Dates: start: 20100616, end: 20101103

REACTIONS (1)
  - INTERSTITIAL LUNG DISEASE [None]
